FAERS Safety Report 6827485-5 (Version None)
Quarter: 2010Q3

REPORT INFORMATION
  Report Type: 
  Country: None (occurrence: None)
  Receive Date: 20100709
  Receipt Date: 20070118
  Transmission Date: 20110219
  Serious: Yes (Other)
  Sender: FDA-Public Use
  Company Number: US-PFIZER INC-2007005227

PATIENT
  Sex: Male
  Weight: 95.3 kg

DRUGS (4)
  1. CHANTIX [Suspect]
     Indication: SMOKING CESSATION THERAPY
     Dates: start: 20070108
  2. WELLBUTRIN [Suspect]
     Indication: SMOKING CESSATION THERAPY
     Dates: start: 20070114
  3. WELLBUTRIN [Suspect]
     Indication: WITHDRAWAL SYNDROME
  4. LEXAPRO [Concomitant]

REACTIONS (5)
  - ABDOMINAL DISCOMFORT [None]
  - IRRITABILITY [None]
  - MENTAL IMPAIRMENT [None]
  - PSYCHOMOTOR SKILLS IMPAIRED [None]
  - THINKING ABNORMAL [None]
